FAERS Safety Report 5452323-5 (Version None)
Quarter: 2007Q3

REPORT INFORMATION
  Report Type: 
  Country: None (occurrence: None)
  Receive Date: 20070912
  Receipt Date: 20070912
  Transmission Date: 20080115
  Serious: Yes (Hospitalization)
  Sender: FDA-Public Use
  Company Number: None

PATIENT
  Age: 77 Year
  Sex: Female
  Weight: 60.9 kg

DRUGS (18)
  1. COLCHICINE 0.6 MG [Suspect]
     Indication: GOUT
     Dosage: 0.6 MG BID PO
     Route: 048
     Dates: start: 20070701, end: 20070910
  2. CEFTRIAXONE [Concomitant]
  3. ZOLPIDEM TARTRATE [Concomitant]
  4. TORSEMIDE [Concomitant]
  5. ENOXAPARIN SODIUM [Concomitant]
  6. CARVEDILOL [Concomitant]
  7. ISOSORBIDE DINITRATE [Concomitant]
  8. LEVOTHYROXINE SODIUM [Concomitant]
  9. ESCITALOPRAM OXALATE [Concomitant]
  10. MAGNESIUM OXIDE [Concomitant]
  11. PREDNISONE [Concomitant]
  12. GUAIFENESIN [Concomitant]
  13. AZITHROMYCIN [Concomitant]
  14. PNEUMOCOCCAL VACCINE [Concomitant]
  15. POTASSIUM CHLORIDE [Concomitant]
  16. LEVABUTEROL [Concomitant]
  17. LACTOBACILLUS [Concomitant]
  18. LOPERAMIDE HCL [Concomitant]

REACTIONS (10)
  - ABDOMINAL PAIN [None]
  - CARDIAC FAILURE CONGESTIVE [None]
  - DIARRHOEA [None]
  - INFECTION [None]
  - PNEUMONIA [None]
  - PRODUCTIVE COUGH [None]
  - PYREXIA [None]
  - RED BLOOD CELL COUNT DECREASED [None]
  - THROMBOCYTOPENIA [None]
  - WHITE BLOOD CELL COUNT DECREASED [None]
